FAERS Safety Report 4804432-9 (Version None)
Quarter: 2005Q4

REPORT INFORMATION
  Report Type: 
  Country: None (occurrence: None)
  Receive Date: 20051020
  Receipt Date: 20050930
  Transmission Date: 20060501
  Serious: Yes (Other)
  Sender: FDA-Public Use
  Company Number: DK-GLAXOSMITHKLINE-B0396132A

PATIENT
  Sex: Male

DRUGS (12)
  1. AVANDAMET [Suspect]
     Indication: DRUG USE FOR UNKNOWN INDICATION
     Route: 065
  2. MAGNYL [Concomitant]
  3. ISOSORBIDE MONONITRATE [Concomitant]
  4. FUROSEMIDE [Concomitant]
  5. POTASSIUM CHLORIDE [Concomitant]
  6. TELMISARTAN [Concomitant]
  7. ZANIDIP [Concomitant]
  8. ATORVASTATIN [Concomitant]
  9. NICORANDIL [Concomitant]
  10. TRAMADOL HCL [Concomitant]
  11. GTN [Concomitant]
  12. METOPROLOL [Concomitant]

REACTIONS (2)
  - DIZZINESS [None]
  - SYNCOPE [None]
